FAERS Safety Report 13032854 (Version 1)
Quarter: 2016Q4

REPORT INFORMATION
  Report Type: Spontaneous
  Country: IT (occurrence: IT)
  Receive Date: 20161215
  Receipt Date: 20161215
  Transmission Date: 20170207
  Serious: Yes (Other)
  Sender: FDA-Public Use
  Company Number: IT-TEIKOKU PHARMA USA-TPU2016-00857

PATIENT
  Age: 45 Year
  Sex: Male

DRUGS (2)
  1. TYSABRI [Concomitant]
     Active Substance: NATALIZUMAB
  2. VERSATIS [Suspect]
     Active Substance: LIDOCAINE
     Indication: OSTEOARTHRITIS
     Route: 061
     Dates: start: 20160702, end: 20160702

REACTIONS (4)
  - Confabulation [Recovered/Resolved]
  - Confusional state [Recovered/Resolved]
  - Loss of consciousness [Recovered/Resolved]
  - Disorientation [Recovered/Resolved]

NARRATIVE: CASE EVENT DATE: 20160702
